FAERS Safety Report 7928162-X (Version None)
Quarter: 2011Q4

REPORT INFORMATION
  Report Type: 
  Country: None (occurrence: None)
  Receive Date: 20111118
  Receipt Date: 20111115
  Transmission Date: 20120403
  Serious: Yes (Other)
  Sender: FDA-Public Use
  Company Number: US-ELI_LILLY_AND_COMPANY-US201108002145

PATIENT
  Sex: Male
  Weight: 96.145 kg

DRUGS (4)
  1. CIALIS [Suspect]
     Indication: ERECTILE DYSFUNCTION
     Dosage: UNK UNK, QD
     Route: 048
     Dates: start: 20110728
  2. LUNESTA [Concomitant]
     Dosage: UNK, 3/W
  3. NORCO [Concomitant]
     Indication: BACK PAIN
  4. ZYRTEC [Concomitant]
     Indication: SEASONAL ALLERGY

REACTIONS (7)
  - MUSCULOSKELETAL STIFFNESS [None]
  - BACK PAIN [None]
  - WRONG TECHNIQUE IN DRUG USAGE PROCESS [None]
  - PAIN IN EXTREMITY [None]
  - PARALYSIS [None]
  - ANXIETY [None]
  - MUSCLE SPASMS [None]
